FAERS Safety Report 24028489 (Version 5)
Quarter: 2024Q3

REPORT INFORMATION
  Report Type: Spontaneous
  Country: ES (occurrence: ES)
  Receive Date: 20240628
  Receipt Date: 20240829
  Transmission Date: 20241017
  Serious: Yes (Hospitalization, Other)
  Sender: BRISTOL MYERS SQUIBB
  Company Number: ES-BAXTER-2024BAX018311

PATIENT
  Age: 67 Year
  Sex: Female
  Weight: 69.1 kg

DRUGS (55)
  1. APIXABAN [Suspect]
     Active Substance: APIXABAN
     Indication: Product used for unknown indication
     Dates: start: 20240226, end: 20240505
  2. CALCIUM [Suspect]
     Active Substance: CALCIUM
     Indication: Product used for unknown indication
     Dates: start: 20240226
  3. SULFAMETHOXAZOLE [Suspect]
     Active Substance: SULFAMETHOXAZOLE
     Indication: Product used for unknown indication
     Dates: start: 20240226
  4. ETOPOSIDE [Suspect]
     Active Substance: ETOPOSIDE
     Indication: Diffuse large B-cell lymphoma stage I
     Dosage: UNK, CYCLE 1, AS A PART OF R-ICE REGIMEN
     Route: 042
     Dates: start: 20240205, end: 20240207
  5. ETOPOSIDE [Suspect]
     Active Substance: ETOPOSIDE
     Dosage: UNK, CYCLE 2, AS A PART OF R-ICE REGIMEN
     Route: 042
     Dates: start: 20240320, end: 20240322
  6. ETOPOSIDE [Suspect]
     Active Substance: ETOPOSIDE
     Dosage: CYCLE 3, AS A PART OF R-ICE REGIMEN
     Route: 042
     Dates: start: 20240423, end: 20240425
  7. ETOPOSIDE [Suspect]
     Active Substance: ETOPOSIDE
     Dosage: AS A PART OF R-ICE REGIMEN
     Route: 042
     Dates: start: 20240424
  8. ETOPOSIDE [Suspect]
     Active Substance: ETOPOSIDE
     Dosage: AS A PART OF R-ICE REGIMEN
     Dates: start: 20240425
  9. EPCORITAMAB [Suspect]
     Active Substance: EPCORITAMAB
     Indication: Diffuse large B-cell lymphoma stage I
     Dosage: CYCLE 1, PRIMING DOSE
     Route: 058
     Dates: start: 20240207, end: 20240207
  10. EPCORITAMAB [Suspect]
     Active Substance: EPCORITAMAB
     Dosage: RE-PRIMING DOSE 1
     Route: 058
     Dates: start: 20240229, end: 20240229
  11. EPCORITAMAB [Suspect]
     Active Substance: EPCORITAMAB
     Dosage: RE-PRIMING INTERMEDIATE DOSE
     Route: 058
     Dates: start: 20240307, end: 20240307
  12. EPCORITAMAB [Suspect]
     Active Substance: EPCORITAMAB
     Dosage: FIRST FULL DOSE, RE-PRIMING 1
     Route: 058
     Dates: start: 20240314, end: 20240314
  13. EPCORITAMAB [Suspect]
     Active Substance: EPCORITAMAB
     Dosage: UNK, C2D1
     Route: 058
     Dates: start: 20240322, end: 20240322
  14. EPCORITAMAB [Suspect]
     Active Substance: EPCORITAMAB
     Dosage: UNK, C2D8
     Route: 058
     Dates: start: 20240410, end: 20240410
  15. EPCORITAMAB [Suspect]
     Active Substance: EPCORITAMAB
     Dosage: C2D15, ONGOING, FULL DOSE, LATEST DOSE ADMINISTERED PRIOR TO THE EVENT ONSET
     Route: 058
     Dates: start: 20240418
  16. EPCORITAMAB [Suspect]
     Active Substance: EPCORITAMAB
     Route: 058
     Dates: start: 20240425
  17. EPCORITAMAB [Suspect]
     Active Substance: EPCORITAMAB
     Dosage: CYCLE 3 DAY 8 (C3D8)
     Route: 058
     Dates: start: 20240503
  18. EPCORITAMAB [Suspect]
     Active Substance: EPCORITAMAB
     Route: 058
     Dates: start: 20240520
  19. PREGABALIN [Suspect]
     Active Substance: PREGABALIN
     Indication: Product used for unknown indication
     Dates: start: 20240226, end: 20240509
  20. LORAZEPAM [Suspect]
     Active Substance: LORAZEPAM
     Indication: Product used for unknown indication
     Dates: start: 202301
  21. ERGOCALCIFEROL [Suspect]
     Active Substance: ERGOCALCIFEROL
     Indication: Product used for unknown indication
     Dates: start: 20240226, end: 20240505
  22. PREDNISONE [Suspect]
     Active Substance: PREDNISONE
     Indication: Product used for unknown indication
     Dosage: UNK
     Dates: start: 20230301, end: 20230616
  23. ACYCLOVIR [Suspect]
     Active Substance: ACYCLOVIR
     Indication: Product used for unknown indication
     Dates: start: 2023
  24. TRIMETHOPRIM [Suspect]
     Active Substance: TRIMETHOPRIM
     Indication: Product used for unknown indication
     Dates: start: 20240226
  25. DEXCHLORPHENIRAMINE [Suspect]
     Active Substance: DEXCHLORPHENIRAMINE
     Indication: Premedication
     Route: 050
     Dates: start: 20240408, end: 20240408
  26. DEXCHLORPHENIRAMINE [Suspect]
     Active Substance: DEXCHLORPHENIRAMINE
     Dosage: DOSAGE FORM: INTRAVENOUS OR ORAL
     Route: 050
     Dates: start: 20240418, end: 20240418
  27. DEXCHLORPHENIRAMINE [Suspect]
     Active Substance: DEXCHLORPHENIRAMINE
     Dosage: 12 MG
     Route: 042
     Dates: start: 20240425, end: 20240425
  28. CYCLOPHOSPHAMIDE [Suspect]
     Active Substance: CYCLOPHOSPHAMIDE
     Indication: Product used for unknown indication
     Dosage: UNK
     Dates: start: 20230301, end: 20230616
  29. VINCRISTINE [Suspect]
     Active Substance: VINCRISTINE
     Indication: Product used for unknown indication
     Dosage: UNK
     Dates: start: 20230301, end: 20230616
  30. DOXORUBICIN [Suspect]
     Active Substance: DOXORUBICIN
     Indication: Product used for unknown indication
     Dosage: UNK
     Dates: start: 20230301, end: 20230616
  31. RITUXIMAB [Suspect]
     Active Substance: RITUXIMAB
     Indication: Diffuse large B-cell lymphoma stage I
     Dosage: UNK, CYCLE 1, AS A PART OF R-ICE REGIMEN
     Route: 042
     Dates: start: 20240205, end: 20240205
  32. RITUXIMAB [Suspect]
     Active Substance: RITUXIMAB
     Dosage: UNK
     Route: 042
     Dates: start: 20230301, end: 20230616
  33. RITUXIMAB [Suspect]
     Active Substance: RITUXIMAB
     Dosage: UNK, CYCLE 2, AS A PART OF R-ICE REGIMEN
     Route: 042
     Dates: start: 20240320, end: 20240320
  34. RITUXIMAB [Suspect]
     Active Substance: RITUXIMAB
     Dosage: CYCLE 3, AS A PART OF R-ICE REGIMEN
     Route: 042
     Dates: start: 20240423
  35. OMEPRAZOLE [Suspect]
     Active Substance: OMEPRAZOLE
     Indication: Product used for unknown indication
     Dates: start: 2023
  36. IFOSFAMIDE [Suspect]
     Active Substance: IFOSFAMIDE
     Indication: Diffuse large B-cell lymphoma stage I
     Dosage: UNK, CYCLE 1, AS A PART OF R-ICE REGIMEN
     Route: 042
     Dates: start: 20240206, end: 20240322
  37. IFOSFAMIDE [Suspect]
     Active Substance: IFOSFAMIDE
     Dosage: UNK, CYCLE 2,AS A PART OF R-ICE REGIMEN
     Route: 042
     Dates: start: 20240321, end: 20240322
  38. IFOSFAMIDE [Suspect]
     Active Substance: IFOSFAMIDE
     Dosage: AS A PART OF R-ICE REGIMEN
     Route: 042
     Dates: start: 20240424, end: 20240425
  39. IFOSFAMIDE [Suspect]
     Active Substance: IFOSFAMIDE
     Dosage: AS A PART OF R-ICE REGIMEN
     Dates: start: 20240425
  40. CARBOPLATIN [Suspect]
     Active Substance: CARBOPLATIN
     Indication: Diffuse large B-cell lymphoma stage I
     Dosage: 5 AUC, CYCLE 1, AS A PART OF R-ICE REGIMEN
     Route: 042
     Dates: start: 20240206, end: 20240206
  41. CARBOPLATIN [Suspect]
     Active Substance: CARBOPLATIN
     Dosage: 2 AUC, CYCLE 2, AS A PART OF R-ICE REGIMEN
     Route: 042
     Dates: start: 20240321, end: 20240321
  42. CARBOPLATIN [Suspect]
     Active Substance: CARBOPLATIN
     Dosage: 2 AUC, CYCLE 3, ONGOING, AS A PART OF R-ICE REGIMEN
     Route: 042
     Dates: start: 20240424
  43. ACETAMINOPHEN [Suspect]
     Active Substance: ACETAMINOPHEN
     Indication: Premedication
     Dates: start: 20240226
  44. ACETAMINOPHEN [Suspect]
     Active Substance: ACETAMINOPHEN
     Route: 048
     Dates: start: 20240408, end: 20240408
  45. ACETAMINOPHEN [Suspect]
     Active Substance: ACETAMINOPHEN
     Route: 048
     Dates: start: 20240418, end: 20240418
  46. ACETAMINOPHEN [Suspect]
     Active Substance: ACETAMINOPHEN
     Dosage: 1000 MG
     Route: 042
     Dates: start: 20240425, end: 20240425
  47. ACETAMINOPHEN [Suspect]
     Active Substance: ACETAMINOPHEN
     Dates: start: 20240506
  48. TRAMADOL [Concomitant]
     Active Substance: TRAMADOL\TRAMADOL HYDROCHLORIDE
     Indication: Product used for unknown indication
     Dates: start: 20240226
  49. VITAMIN D NOS [Concomitant]
     Active Substance: CHOLECALCIFEROL\ERGOCALCIFEROL
     Indication: Product used for unknown indication
  50. METOCLOPRAMIDE [Concomitant]
     Active Substance: METOCLOPRAMIDE
     Indication: Product used for unknown indication
     Dosage: UNK
     Dates: start: 20240506, end: 20240509
  51. MAGNESIUM SULFATE [Concomitant]
     Active Substance: MAGNESIUM SULFATE\MAGNESIUM SULFATE HEPTAHYDRATE
     Indication: Product used for unknown indication
     Dosage: UNK
     Dates: start: 20240506, end: 20240506
  52. ONDANSETRON [Concomitant]
     Active Substance: ONDANSETRON
     Indication: Product used for unknown indication
     Dosage: UNK
     Dates: start: 20240506, end: 20240509
  53. METAMIZOLE [Concomitant]
     Active Substance: METAMIZOLE
     Indication: Product used for unknown indication
     Dosage: UNK
     Dates: start: 20240506, end: 20240506
  54. PIPERACILLIN [Concomitant]
     Active Substance: PIPERACILLIN
     Indication: Product used for unknown indication
     Dosage: UNK
     Dates: start: 20240506, end: 20240509
  55. TAZOBACTAM [Concomitant]
     Active Substance: TAZOBACTAM
     Indication: Product used for unknown indication
     Dosage: UNK
     Dates: start: 20240506, end: 20240509

REACTIONS (1)
  - Febrile neutropenia [Recovered/Resolved]

NARRATIVE: CASE EVENT DATE: 20240506
